FAERS Safety Report 17810308 (Version 1)
Quarter: 2020Q2

REPORT INFORMATION
  Report Type: Spontaneous
  Country: US (occurrence: US)
  Receive Date: 20200521
  Receipt Date: 20200521
  Transmission Date: 20200714
  Serious: No
  Sender: FDA-Public Use
  Company Number: US-JNJFOC-20200436085

PATIENT
  Age: 11 Year
  Sex: Female
  Weight: 45.85 kg

DRUGS (3)
  1. BENADRYL [Suspect]
     Active Substance: DIPHENHYDRAMINE HYDROCHLORIDE
     Indication: HYPERSENSITIVITY
     Route: 065
     Dates: start: 202004
  2. ZYRTEC [Suspect]
     Active Substance: CETIRIZINE HYDROCHLORIDE
     Indication: HYPERSENSITIVITY
     Route: 065
     Dates: start: 202004
  3. LUBRIDERM INTENSE SKIN REPAIR BODYLOTION [Concomitant]
     Indication: DRY SKIN
     Dosage: APPLIED LIBERALLY ALL OVER ARMS AND LEGS?DATE OF LAST ADMIN: 20-APR-2020
     Route: 061
     Dates: start: 20200420

REACTIONS (1)
  - Product use in unapproved indication [Unknown]

NARRATIVE: CASE EVENT DATE: 202004
